FAERS Safety Report 11415253 (Version 1)
Quarter: 2015Q3

REPORT INFORMATION
  Report Type: Spontaneous
  Country: US (occurrence: None)
  Receive Date: 20150824
  Receipt Date: 20150824
  Transmission Date: 20151125
  Serious: Yes (Hospitalization, Other)
  Sender: FDA-Public Use
  Company Number: None

PATIENT
  Age: 65 Year
  Sex: Male

DRUGS (14)
  1. METFORMIN [Concomitant]
     Active Substance: METFORMIN HYDROCHLORIDE
  2. TEMOZOLOMIDE 250MG TEVA [Suspect]
     Active Substance: TEMOZOLOMIDE
     Indication: PANCREATIC CARCINOMA
     Route: 048
  3. LORAZEPAM. [Concomitant]
     Active Substance: LORAZEPAM
  4. MIRTAZEPINE TEVA [Concomitant]
     Active Substance: MIRTAZAPINE
  5. NEXIUM [Concomitant]
     Active Substance: ESOMEPRAZOLE MAGNESIUM
  6. CAPECITABINE 500MG TEVA [Suspect]
     Active Substance: CAPECITABINE
     Indication: PANCREATIC CARCINOMA
     Dosage: 3 PILLS
     Route: 048
     Dates: start: 20150726, end: 20150804
  7. OXYCODONE [Concomitant]
     Active Substance: OXYCODONE
  8. CALCIUM [Concomitant]
     Active Substance: CALCIUM
  9. ENOXAPARIN [Concomitant]
     Active Substance: ENOXAPARIN
  10. VITAMIN B-6 [Concomitant]
     Active Substance: PYRIDOXINE
  11. ASPRIN [Concomitant]
     Active Substance: ASPIRIN
  12. CITALOPRAM [Concomitant]
     Active Substance: CITALOPRAM HYDROBROMIDE
  13. LOMOTIL [Concomitant]
     Active Substance: ATROPINE SULFATE\DIPHENOXYLATE HYDROCHLORIDE
  14. ONDANSTRON [Concomitant]

REACTIONS (3)
  - Paraesthesia [None]
  - Dizziness [None]
  - Pancytopenia [None]

NARRATIVE: CASE EVENT DATE: 20150801
